FAERS Safety Report 5394115-1 (Version None)
Quarter: 2007Q3

REPORT INFORMATION
  Report Type: 
  Country: None (occurrence: None)
  Receive Date: 20070723
  Receipt Date: 20070711
  Transmission Date: 20080115
  Serious: Yes (Death)
  Sender: FDA-Public Use
  Company Number: PL-AMGEN-US235110

PATIENT
  Sex: Male
  Weight: 70 kg

DRUGS (4)
  1. ENBREL [Suspect]
     Indication: RHEUMATOID ARTHRITIS
     Route: 058
     Dates: start: 20061206
  2. BETALOC [Concomitant]
     Indication: MYOCARDIAL ISCHAEMIA
     Dosage: 25 MG; UNSPECIFIED FREQUENCY
     Dates: start: 20070101, end: 20070601
  3. PREDNISONE ACETATE [Concomitant]
     Indication: RHEUMATOID ARTHRITIS
  4. ENALAPRIL MALEATE [Concomitant]
     Indication: HYPERTENSION
     Dates: start: 20020101, end: 20070601

REACTIONS (1)
  - DEATH [None]
